FAERS Safety Report 5525716-5 (Version None)
Quarter: 2007Q4

REPORT INFORMATION
  Report Type: 
  Country: None (occurrence: None)
  Receive Date: 20071126
  Receipt Date: 20071114
  Transmission Date: 20080405
  Serious: Yes (Hospitalization)
  Sender: FDA-Public Use
  Company Number: FR-ROCHE-532120

PATIENT
  Age: 90 Year
  Sex: Female

DRUGS (1)
  1. ROCEPHIN [Suspect]
     Indication: GASTROINTESTINAL INFECTION
     Dosage: FORM: INJECTABLE SOLUTION
     Route: 042
     Dates: start: 20070801, end: 20070817

REACTIONS (1)
  - VASCULAR PURPURA [None]
